FAERS Safety Report 22203685 (Version 1)
Quarter: 2023Q2

REPORT INFORMATION
  Report Type: Spontaneous
  Country: RO (occurrence: RO)
  Receive Date: 20230412
  Receipt Date: 20230412
  Transmission Date: 20230721
  Serious: Yes (Death)
  Sender: FDA-Public Use
  Company Number: RO-Merck Healthcare KGaA-9395029

PATIENT
  Age: 66 Year

DRUGS (5)
  1. ERBITUX [Suspect]
     Active Substance: CETUXIMAB
     Indication: Squamous cell carcinoma of head and neck
     Dosage: UNK, UNKNOWN
     Route: 065
     Dates: start: 201701
  2. ERBITUX [Suspect]
     Active Substance: CETUXIMAB
     Dosage: 6TH TO 8TH CYCLES
     Route: 065
     Dates: start: 201711, end: 201802
  3. FLUOROURACIL [Concomitant]
     Active Substance: FLUOROURACIL
     Indication: Squamous cell carcinoma of head and neck
     Dosage: CYCLE 6 TO CYCLE 8
     Route: 065
     Dates: start: 201711, end: 201802
  4. CARBOPLATIN [Concomitant]
     Active Substance: CARBOPLATIN
     Indication: Squamous cell carcinoma of head and neck
     Dosage: CYCLE 6 TO CYCLE 8
     Route: 065
     Dates: start: 201711, end: 201802
  5. DOCETAXEL [Concomitant]
     Active Substance: DOCETAXEL
     Indication: Squamous cell carcinoma of head and neck
     Dosage: CYCLE 6 TO CYCLE 8
     Route: 065
     Dates: start: 201711, end: 201802

REACTIONS (1)
  - Death [Fatal]

NARRATIVE: CASE EVENT DATE: 20190901
